FAERS Safety Report 22137010 (Version 1)
Quarter: 2023Q1

REPORT INFORMATION
  Report Type: Spontaneous
  Country: DE (occurrence: DE)
  Receive Date: 20230324
  Receipt Date: 20230324
  Transmission Date: 20230418
  Serious: Yes (Other)
  Sender: FDA-Public Use
  Company Number: DE-TAKEDA-2023TUS029594

PATIENT
  Age: 59 Year
  Sex: Female

DRUGS (1)
  1. ENTYVIO [Suspect]
     Active Substance: VEDOLIZUMAB
     Indication: Crohn^s disease
     Dosage: UNK
     Route: 042

REACTIONS (9)
  - Crohn^s disease [Unknown]
  - COVID-19 [Recovering/Resolving]
  - Proteinuria [Unknown]
  - Photosensitivity reaction [Unknown]
  - Larynx irritation [Unknown]
  - Mouth ulceration [Unknown]
  - Urinary tract infection [Unknown]
  - Rash [Unknown]
  - Pruritus [Unknown]
